FAERS Safety Report 9366882 (Version 1)
Quarter: 2013Q2

REPORT INFORMATION
  Report Type: Spontaneous
  Country: US (occurrence: US)
  Receive Date: 20130625
  Receipt Date: 20130625
  Transmission Date: 20140414
  Serious: Yes (Hospitalization)
  Sender: FDA-Public Use
  Company Number: US-GLAXOSMITHKLINE-A1028007A

PATIENT
  Age: 72 Year
  Sex: Male

DRUGS (15)
  1. ADVAIR [Suspect]
     Indication: DYSPNOEA
     Dosage: 1PUFF TWICE PER DAY
     Route: 055
     Dates: start: 2011
  2. WARFARIN [Concomitant]
  3. OXYCONTIN [Concomitant]
  4. CRESTOR [Concomitant]
  5. ALBUTEROL [Concomitant]
  6. AZELASTINE [Concomitant]
  7. DIAZEPAM [Concomitant]
  8. HYDROCHLOROTHIAZIDE [Concomitant]
  9. SINGULAIR [Concomitant]
  10. NITROGLYCERINE [Concomitant]
  11. OMEPRAZOLE [Concomitant]
  12. MULTIVITAMIN [Concomitant]
  13. VITAMIN B6 [Concomitant]
  14. VITAMIN B12 [Concomitant]
  15. FOLIC ACID [Concomitant]

REACTIONS (7)
  - Drug ineffective [Unknown]
  - Mouth ulceration [Recovered/Resolved]
  - Aphonia [Not Recovered/Not Resolved]
  - Apathy [Not Recovered/Not Resolved]
  - Heart rate decreased [Unknown]
  - Increased upper airway secretion [Not Recovered/Not Resolved]
  - Drug administration error [Recovered/Resolved]
